FAERS Safety Report 4532676-2 (Version None)
Quarter: 2004Q4

REPORT INFORMATION
  Report Type: 
  Country: None (occurrence: None)
  Receive Date: 20041221
  Receipt Date: 20041208
  Transmission Date: 20050328
  Serious: Yes (Other)
  Sender: FDA-Public Use
  Company Number: PHEH2004US13189

PATIENT
  Age: 36 Year
  Sex: Female

DRUGS (1)
  1. LAMISIL [Suspect]
     Indication: NAIL TINEA
     Dosage: 250 MG, UNK
     Route: 048
     Dates: start: 20040601

REACTIONS (4)
  - HEPATOMEGALY [None]
  - LIVER DISORDER [None]
  - PAIN [None]
  - TREATMENT NONCOMPLIANCE [None]
